FAERS Safety Report 5595767-3 (Version None)
Quarter: 2008Q1

REPORT INFORMATION
  Report Type: 
  Country: None (occurrence: None)
  Receive Date: 20080118
  Receipt Date: 20080104
  Transmission Date: 20080703
  Serious: Yes (Disabling)
  Sender: FDA-Public Use
  Company Number: B0497684A

PATIENT
  Age: 18 Year
  Sex: Female
  Weight: 62 kg

DRUGS (2)
  1. ARIXTRA [Suspect]
     Indication: THROMBOSIS PROPHYLAXIS
     Dosage: 7.5MG PER DAY
     Route: 058
     Dates: start: 20070827, end: 20071115
  2. PARACETAMOL [Concomitant]
     Dosage: 3G PER DAY
     Dates: start: 20070827, end: 20071115

REACTIONS (4)
  - DISTURBANCE IN ATTENTION [None]
  - FATIGUE [None]
  - HYPERSOMNIA [None]
  - OFF LABEL USE [None]
